FAERS Safety Report 5405334-X (Version None)
Quarter: 2007Q3

REPORT INFORMATION
  Report Type: 
  Country: None (occurrence: None)
  Receive Date: 20070803
  Receipt Date: 20070725
  Transmission Date: 20080115
  Serious: Yes (Hospitalization, Other)
  Sender: FDA-Public Use
  Company Number: US-ELI_LILLY_AND_COMPANY-US200707003799

PATIENT
  Age: 94 Year
  Sex: Female
  Weight: 56.462 kg

DRUGS (6)
  1. FORTEO [Suspect]
     Indication: OSTEOPOROSIS
     Dosage: 20 UG, DAILY (1/D)
     Dates: start: 20070405, end: 20070601
  2. PROCRIT [Concomitant]
  3. CARDIZEM [Concomitant]
  4. ASPIRIN [Concomitant]
  5. CIPRO [Concomitant]
  6. MULTI-VITAMIN [Concomitant]

REACTIONS (2)
  - FALL [None]
  - HIP FRACTURE [None]
